FAERS Safety Report 18262491 (Version 1)
Quarter: 2020Q3

REPORT INFORMATION
  Report Type: Spontaneous
  Country: BR (occurrence: BR)
  Receive Date: 20200914
  Receipt Date: 20200914
  Transmission Date: 20201103
  Serious: Yes (Life-Threatening, Hospitalization)
  Sender: FDA-Public Use
  Company Number: NVSC2020BR250140

PATIENT
  Age: 44 Year
  Sex: Male

DRUGS (2)
  1. REVOLADE [Suspect]
     Active Substance: ELTROMBOPAG
     Dosage: 75 MG, QD (STRENGTH 50 MG)
     Route: 065
     Dates: start: 20200802, end: 20200816
  2. REVOLADE [Suspect]
     Active Substance: ELTROMBOPAG
     Indication: PRODUCT USED FOR UNKNOWN INDICATION
     Dosage: 75 MG, QD (STRENGTH 25 MG)
     Route: 065
     Dates: start: 20200802, end: 20200816

REACTIONS (5)
  - Pyrexia [Not Recovered/Not Resolved]
  - Platelet count decreased [Unknown]
  - Product availability issue [Not Recovered/Not Resolved]
  - Epistaxis [Not Recovered/Not Resolved]
  - Asthenia [Recovering/Resolving]

NARRATIVE: CASE EVENT DATE: 20200902
